FAERS Safety Report 19955381 (Version 1)
Quarter: 2021Q4

REPORT INFORMATION
  Report Type: Spontaneous
  Country: JP (occurrence: JP)
  Receive Date: 20211013
  Receipt Date: 20211013
  Transmission Date: 20220304
  Serious: Yes (Hospitalization)
  Sender: FDA-Public Use
  Company Number: 2021A765828

PATIENT
  Age: 85 Year
  Sex: Female

DRUGS (3)
  1. TAGRISSO [Suspect]
     Active Substance: OSIMERTINIB
     Indication: Non-small cell lung cancer
     Route: 048
  2. GLIMEPIRIDE [Suspect]
     Active Substance: GLIMEPIRIDE
     Route: 065
  3. MINOCYCLINE HYDROCHLORIDE [Suspect]
     Active Substance: MINOCYCLINE HYDROCHLORIDE
     Route: 065

REACTIONS (4)
  - Altered state of consciousness [Unknown]
  - Malaise [Unknown]
  - Constipation [Unknown]
  - Hypoglycaemia [Unknown]
